FAERS Safety Report 25290637 (Version 1)
Quarter: 2025Q2

REPORT INFORMATION
  Report Type: Spontaneous
  Country: GB (occurrence: GB)
  Receive Date: 20250510
  Receipt Date: 20250510
  Transmission Date: 20250717
  Serious: Yes (Hospitalization)
  Sender: AMGEN
  Company Number: GB-AMGEN-GBRSP2024201819

PATIENT
  Age: 9 Year
  Sex: Male

DRUGS (1)
  1. PROLIA [Suspect]
     Active Substance: DENOSUMAB
     Indication: Bone giant cell tumour benign
     Dosage: 60 MILLIGRAM, Q8WK, (AVERAGE 1.6 MG/KG)
     Route: 065

REACTIONS (5)
  - Hypercalcaemia [Unknown]
  - Rebound effect [Unknown]
  - Acute kidney injury [Unknown]
  - Drug effective for unapproved indication [Unknown]
  - Off label use [Unknown]
